FAERS Safety Report 5036298-9 (Version None)
Quarter: 2006Q2

REPORT INFORMATION
  Report Type: 
  Country: None (occurrence: None)
  Receive Date: 20060601
  Receipt Date: 20060425
  Transmission Date: 20061013
  Serious: No
  Sender: FDA-Public Use
  Company Number: US200604004258

PATIENT
  Age: 52 Year
  Sex: Female
  Weight: 95.2 kg

DRUGS (2)
  1. CYMBALTA [Suspect]
     Dosage: SEE IMAGE
     Dates: start: 20031201
  2. XANAX /USA/(ALPRAZOLAM) [Concomitant]

REACTIONS (3)
  - APATHY [None]
  - DEPRESSION [None]
  - DRUG INEFFECTIVE [None]
